FAERS Safety Report 5150660-5 (Version None)
Quarter: 2006Q4

REPORT INFORMATION
  Report Type: 
  Country: None (occurrence: None)
  Receive Date: 20061109
  Receipt Date: 20061109
  Transmission Date: 20070319
  Serious: Yes (Other)
  Sender: FDA-Public Use
  Company Number: None

PATIENT
  Sex: Male
  Weight: 91.6266 kg

DRUGS (2)
  1. AVANDIA [Suspect]
     Indication: DIABETES MELLITUS
     Dosage: 1 DAILY  PO
     Route: 048
     Dates: start: 20060925, end: 20061108
  2. METOLAZONE [Suspect]
     Indication: HYPERTENSION
     Dosage: 1       DAILY    PO
     Route: 048
     Dates: start: 20060925, end: 20061108

REACTIONS (3)
  - BLOOD GLUCOSE INCREASED [None]
  - BLOOD PRESSURE INCREASED [None]
  - PHARMACEUTICAL PRODUCT COMPLAINT [None]
